FAERS Safety Report 8974219 (Version 1)
Quarter: 2012Q4

REPORT INFORMATION
  Report Type: Spontaneous
  Country: IT (occurrence: None)
  Receive Date: 20121212
  Receipt Date: 20121212
  Transmission Date: 20130627
  Serious: Yes (Hospitalization)
  Sender: FDA-Public Use
  Company Number: GER/ITL/12/0026893

PATIENT
  Age: 39 Year
  Sex: Female

DRUGS (5)
  1. PANTOPRAZOLE (PANTOPRAZOLE) [Suspect]
     Indication: ATTEMPTED SUICIDE
     Dosage: 14 Dosage forms, 14 in 1 Total
     Route: 048
     Dates: start: 20121011, end: 20121011
  2. DICLOFENAC [Suspect]
     Indication: ATTEMPTED SUICIDE
     Dosage: 2 Dosage forms, 2 in 1 Total
     Route: 030
  3. LORAZEPAM (LORAZEPAM) [Suspect]
     Indication: ATTEMPTED SUICIDE
     Dosage: 20 Dosage forms, 20 in 1 Total
     Route: 048
     Dates: start: 20121011, end: 20121011
  4. SERTRALINE (SERTRALINE) (SERTRALINE) [Suspect]
     Indication: ATTEMPTED SUICIDE
     Dosage: 9 Dosage forms, 9 in 1 Total
     Route: 048
     Dates: start: 20121011, end: 20121011
  5. METFORMIN (METFORMIN) [Suspect]
     Indication: ATTEMPTED SUICIDE
     Dosage: 20 Dosage forms, 20 in 1 Total
     Route: 048
     Dates: start: 20121011, end: 20121011

REACTIONS (1)
  - Suicide attempt [None]
